FAERS Safety Report 8248405-5 (Version None)
Quarter: 2012Q1

REPORT INFORMATION
  Report Type: 
  Country: None (occurrence: None)
  Receive Date: 20120330
  Receipt Date: 20120316
  Transmission Date: 20120608
  Serious: Yes (Other)
  Sender: FDA-Public Use
  Company Number: PHHY2012JP020444

PATIENT
  Age: 30 Year
  Sex: Female

DRUGS (7)
  1. METHOTREXATE [Concomitant]
     Indication: PROPHYLAXIS AGAINST GRAFT VERSUS HOST DISEASE
  2. ANTI-THYMOCYTE GLOBULIN EQUINE NOS [Concomitant]
     Dosage: 10 MG/KG, FOR FOUR DAYS
  3. CYCLOPHOSPHAMIDE [Concomitant]
     Dosage: 750 MG/M2, FOR FOUR DAYS
  4. RADIATION THERAPY [Concomitant]
     Dosage: 2 GY - TWO COURSES
  5. PREDNISOLONE [Concomitant]
     Indication: PROPHYLAXIS AGAINST GRAFT VERSUS HOST DISEASE
  6. FLUDARABINE PHOSPHATE [Concomitant]
     Dosage: 25 MG/M2, FOR  FOUR DAYS
  7. CYCLOSPORINE [Suspect]
     Indication: PROPHYLAXIS AGAINST GRAFT VERSUS HOST DISEASE

REACTIONS (2)
  - RETINAL HAEMORRHAGE [None]
  - ACUTE GRAFT VERSUS HOST DISEASE [None]
